FAERS Safety Report 7585783-4 (Version None)
Quarter: 2011Q3

REPORT INFORMATION
  Report Type: 
  Country: None (occurrence: None)
  Receive Date: 20110701
  Receipt Date: 20091122
  Transmission Date: 20111222
  Serious: Yes (Death, Hospitalization, Other)
  Sender: FDA-Public Use
  Company Number: US-BAYER-200940102NA

PATIENT
  Age: 83 Year
  Sex: Female
  Weight: 59.864 kg

DRUGS (25)
  1. PROTAMINE SULFATE [Concomitant]
     Dosage: UNK
     Route: 042
     Dates: start: 20070502
  2. LASIX [Concomitant]
     Dosage: 40 MG, QD
     Route: 048
  3. LIDOCAINE [Concomitant]
     Dosage: 100 MG, UNK
     Route: 042
     Dates: start: 20070502
  4. TRICOR [Concomitant]
     Dosage: 48 MG, QD
     Route: 048
  5. RED BLOOD CELLS [Concomitant]
     Dosage: 254 ML, CELL SAVE RED BLOOD CELLS
     Route: 042
     Dates: start: 20070502
  6. COREG [Concomitant]
     Dosage: 3.125
     Route: 048
  7. NOVOLIO 70-30 [Concomitant]
     Dosage: 30 UNITS IN THE MORNING AND 15 UNITS IN THE EVENING
     Route: 058
  8. HEPARIN [Concomitant]
     Dosage: 35000 U, UNK
     Route: 042
     Dates: start: 20070502
  9. DOBUTAMINE HCL [Concomitant]
     Dosage: 5 MCG/KG/MIN AND WEANED
     Route: 042
     Dates: start: 20070502
  10. CARDIOPLEGIA [Concomitant]
     Dosage: UNK
     Route: 042
     Dates: start: 20070502
  11. KLOR-CON [Concomitant]
     Dosage: 10 MG, UNK
     Route: 048
  12. ACETYLSALICYLIC ACID SRT [Concomitant]
     Dosage: 325 MG, QD
     Route: 048
  13. ALBUMIN (HUMAN) [Concomitant]
     Dosage: 10
     Route: 042
     Dates: start: 20070502
  14. AMIODARONE HCL [Concomitant]
     Dosage: UNK
     Route: 042
     Dates: start: 20070505
  15. GABAPENTIN [Concomitant]
     Dosage: 300 MG, QD
     Route: 048
  16. MORPHINE [Concomitant]
     Dosage: DRIP
     Route: 042
     Dates: start: 20070502
  17. INSULIN [Concomitant]
     Dosage: UNK
     Route: 042
     Dates: start: 20070503
  18. TRASYLOL [Suspect]
     Dosage: 200 ML, PUMP PRIME
     Route: 042
     Dates: start: 20070502, end: 20070502
  19. PHENYLEPHRINE HCL [Concomitant]
     Dosage: UNK
     Route: 042
     Dates: start: 20070502
  20. CALCIUM CHLORIDE [Concomitant]
     Dosage: 1.0 G, UNK
     Dates: start: 20070502
  21. RED BLOOD CELLS [Concomitant]
     Dosage: 2 U, UNK
     Route: 042
     Dates: start: 20070502
  22. RED BLOOD CELLS [Concomitant]
     Dosage: 1 U, UNK
     Route: 042
  23. TRASYLOL [Suspect]
     Indication: PRODUCT USED FOR UNKNOWN INDICATION
     Dosage: 1 ML, TEST DOSE
     Route: 042
     Dates: start: 20070502, end: 20070502
  24. LIPITOR [Concomitant]
     Dosage: 40 MG, UNK
     Route: 048
  25. ZOLOFT [Concomitant]
     Dosage: 50 MG, QD
     Route: 048

REACTIONS (13)
  - MULTI-ORGAN FAILURE [None]
  - STRESS [None]
  - ANXIETY [None]
  - INJURY [None]
  - RENAL IMPAIRMENT [None]
  - EMOTIONAL DISTRESS [None]
  - RENAL FAILURE [None]
  - ANHEDONIA [None]
  - UNEVALUABLE EVENT [None]
  - PAIN [None]
  - RENAL INJURY [None]
  - DEATH [None]
  - FEAR [None]
